FAERS Safety Report 5697262-X (Version None)
Quarter: 2008Q2

REPORT INFORMATION
  Report Type: 
  Country: None (occurrence: None)
  Receive Date: 20080408
  Receipt Date: 20070810
  Transmission Date: 20081010
  Serious: No
  Sender: FDA-Public Use
  Company Number: US-BAYER-US-2007-028809

PATIENT
  Age: 36 Year
  Sex: Female
  Weight: 45 kg

DRUGS (1)
  1. YASMIN [Suspect]
     Indication: PREMENSTRUAL SYNDROME
     Route: 048
     Dates: start: 20050101

REACTIONS (4)
  - GENITAL HAEMORRHAGE [None]
  - METRORRHAGIA [None]
  - PHARMACEUTICAL PRODUCT COMPLAINT [None]
  - PREMENSTRUAL SYNDROME [None]
